FAERS Safety Report 8286755-7 (Version None)
Quarter: 2012Q2

REPORT INFORMATION
  Report Type: 
  Country: None (occurrence: None)
  Receive Date: 20120411
  Receipt Date: 20120310
  Transmission Date: 20120825
  Serious: Yes (Other)
  Sender: FDA-Public Use
  Company Number: AUR-APL-2012-00757

PATIENT
  Age: 37 Year
  Sex: Female
  Weight: 61.6892 kg

DRUGS (2)
  1. AMITRIPTYLINE HYDROCHLORIDE [Concomitant]
  2. ZOLPIDEM [Suspect]
     Indication: INSOMNIA
     Dosage: (1 DOSAGE FORMS,EVERY NIGHT),ORAL
     Route: 048
     Dates: start: 20090101

REACTIONS (6)
  - MOBILITY DECREASED [None]
  - PRODUCT QUALITY ISSUE [None]
  - INSOMNIA [None]
  - EUPHORIC MOOD [None]
  - DRUG INEFFECTIVE [None]
  - LETHARGY [None]
